FAERS Safety Report 9209662 (Version 2)
Quarter: 2013Q4

REPORT INFORMATION
  Report Type: Spontaneous
  Country: US (occurrence: US)
  Receive Date: 20130404
  Receipt Date: 20131211
  Transmission Date: 20140711
  Serious: Yes (Other)
  Sender: FDA-Public Use
  Company Number: US-BAYER-2013-040122

PATIENT
  Age: 50 Year
  Sex: Female

DRUGS (5)
  1. YAZ [Suspect]
     Indication: ACNE
     Dosage: UNK
  2. CITALOPRAM [Concomitant]
     Dosage: 20 MG, UNK
     Dates: start: 20090806
  3. RANITIDINE [Concomitant]
     Dosage: 300 MG, UNK
     Dates: start: 20090806
  4. TRAZODONE [Concomitant]
     Dosage: 50 MG, UNK
     Dates: start: 20090806
  5. PROMETHAZINE [Concomitant]
     Dosage: 25 MG, UNK
     Dates: start: 20090806

REACTIONS (5)
  - Gallbladder injury [None]
  - Biliary dyskinesia [None]
  - Cholecystitis acute [None]
  - Pain [None]
  - Injury [None]
